FAERS Safety Report 14225742 (Version 1)
Quarter: 2017Q4

REPORT INFORMATION
  Report Type: Spontaneous
  Country: US (occurrence: None)
  Receive Date: 20171123
  Receipt Date: 20171123
  Transmission Date: 20180321
  Serious: No
  Sender: FDA-Public Use
  Company Number: None

PATIENT
  Age: 45 Year
  Sex: Female

DRUGS (1)
  1. HUMIRA [Suspect]
     Active Substance: ADALIMUMAB
     Indication: RHEUMATOID ARTHRITIS
     Dosage: 40MG/0.8ML ML EVERY 2 WEEKS SQ
     Route: 058
     Dates: start: 20171005, end: 20171102

REACTIONS (1)
  - Urticaria [None]

NARRATIVE: CASE EVENT DATE: 20171122
